FAERS Safety Report 4358272-8 (Version None)
Quarter: 2004Q2

REPORT INFORMATION
  Report Type: 
  Country: None (occurrence: None)
  Receive Date: 20040510
  Receipt Date: 20040426
  Transmission Date: 20050107
  Serious: Yes (Disabling)
  Sender: FDA-Public Use
  Company Number: 2004-115490-NL

PATIENT
  Age: 48 Year
  Sex: Female

DRUGS (2)
  1. MIRTAZAPINE [Suspect]
     Indication: DEPRESSION
     Dosage: 15 MG ORAL
     Route: 048
     Dates: start: 20030318, end: 20040407
  2. CHLORPROMAZINE [Concomitant]

REACTIONS (4)
  - EYE DISORDER [None]
  - EYE SWELLING [None]
  - MOUTH ULCERATION [None]
  - ULCER [None]
